FAERS Safety Report 21096225 (Version 1)
Quarter: 2022Q3

REPORT INFORMATION
  Report Type: Spontaneous
  Country: US (occurrence: None)
  Receive Date: 20220718
  Receipt Date: 20220718
  Transmission Date: 20221027
  Serious: Yes (Other)
  Sender: FDA-Public Use
  Company Number: None

PATIENT
  Age: 75 Year
  Sex: Female
  Weight: 45 kg

DRUGS (2)
  1. EVUSHELD [Suspect]
     Active Substance: CILGAVIMAB\TIXAGEVIMAB
     Indication: Immunosuppression
     Route: 030
     Dates: start: 20220215, end: 20220215
  2. EVUSHELD [Suspect]
     Active Substance: CILGAVIMAB\TIXAGEVIMAB
     Indication: COVID-19 prophylaxis

REACTIONS (1)
  - Deep vein thrombosis [None]

NARRATIVE: CASE EVENT DATE: 20220308
